FAERS Safety Report 23674985 (Version 2)
Quarter: 2024Q2

REPORT INFORMATION
  Report Type: Spontaneous
  Country: US (occurrence: US)
  Receive Date: 20240326
  Receipt Date: 20240524
  Transmission Date: 20240716
  Serious: Yes (Other)
  Sender: FDA-Public Use
  Company Number: US-ELI_LILLY_AND_COMPANY-US202403009563

PATIENT
  Age: 70 Year
  Sex: Female
  Weight: 66.67 kg

DRUGS (1)
  1. EMGALITY [Suspect]
     Active Substance: GALCANEZUMAB-GNLM
     Indication: Migraine
     Dosage: 120 MG, EVERY 28 DAYS
     Route: 058
     Dates: end: 20231126

REACTIONS (5)
  - Small intestinal obstruction [Recovering/Resolving]
  - Peritoneal abscess [Unknown]
  - Intestinal perforation [Recovered/Resolved]
  - Peritonitis [Recovered/Resolved]
  - Infection [Recovered/Resolved]
